FAERS Safety Report 8077480-6 (Version None)
Quarter: 2012Q1

REPORT INFORMATION
  Report Type: 
  Country: None (occurrence: None)
  Receive Date: 20120127
  Receipt Date: 20120117
  Transmission Date: 20120608
  Serious: Yes (Hospitalization, Other)
  Sender: FDA-Public Use
  Company Number: US-CELGENEUS-163-21880-11102458

PATIENT
  Sex: Female
  Weight: 64.014 kg

DRUGS (12)
  1. VELCADE [Concomitant]
     Route: 065
     Dates: start: 20110613
  2. METOPROLOL TARTRATE [Concomitant]
     Route: 065
  3. BENDAMUSTINE [Concomitant]
     Route: 065
     Dates: start: 20111205
  4. REVLIMID [Suspect]
     Dosage: 15 MILLIGRAM
     Route: 048
     Dates: start: 20110906, end: 20111116
  5. OXYCODONE HCL [Concomitant]
     Indication: PAIN
     Dosage: 5 MILLIGRAM
     Route: 065
  6. VELCADE [Concomitant]
     Dosage: 100 MILLILITER
     Route: 065
     Dates: start: 20100712
  7. OXYCONTIN [Concomitant]
     Indication: PAIN
     Dosage: 10 MILLIGRAM
     Route: 065
  8. ASPIRIN [Concomitant]
     Dosage: 81 MILLIGRAM
     Route: 065
  9. PREDNISONE TAB [Concomitant]
     Route: 065
     Dates: start: 20111205
  10. XANAX [Concomitant]
     Indication: ANXIETY
     Route: 065
  11. REVLIMID [Suspect]
     Indication: MULTIPLE MYELOMA
     Dosage: 25 MILLIGRAM
     Route: 048
     Dates: start: 20110801
  12. DEXAMETHASONE [Concomitant]
     Route: 065

REACTIONS (4)
  - CEREBROVASCULAR ACCIDENT [None]
  - HAEMOGLOBIN DECREASED [None]
  - PLATELET COUNT DECREASED [None]
  - INSOMNIA [None]
